FAERS Safety Report 9037899 (Version 3)
Quarter: 2013Q1

REPORT INFORMATION
  Report Type: Spontaneous
  Country: FR (occurrence: FR)
  Receive Date: 20130129
  Receipt Date: 20130319
  Transmission Date: 20140127
  Serious: Yes (Hospitalization)
  Sender: FDA-Public Use
  Company Number: FR-ELI_LILLY_AND_COMPANY-FR201301007502

PATIENT
  Age: 41 Year
  Sex: Male
  Weight: 100 kg

DRUGS (7)
  1. ZYPADHERA [Suspect]
     Indication: SCHIZOPHRENIA
     Dosage: 405 MG, 2/M
     Route: 030
     Dates: start: 20121221
  2. SERESTA [Concomitant]
     Indication: ANXIETY
     Dosage: 250 MG, QD
  3. SERESTA [Concomitant]
     Dosage: 200 MG, QD
  4. TERCIAN [Concomitant]
     Indication: ANXIETY
     Dosage: 500 MG, QD
  5. TERCIAN [Concomitant]
     Dosage: 400 MG, QD
  6. EFFEXOR [Concomitant]
     Indication: ANXIETY
     Dosage: 75 MG, QD
  7. AVLOCARDYL [Concomitant]
     Dosage: 20 MG, QD

REACTIONS (4)
  - Myocardial infarction [Recovered/Resolved with Sequelae]
  - Ventricular hypokinesia [Unknown]
  - Mitral valve incompetence [Unknown]
  - Prescribed overdose [Unknown]
